FAERS Safety Report 6431555-3 (Version None)
Quarter: 2009Q4

REPORT INFORMATION
  Report Type: 
  Country: None (occurrence: None)
  Receive Date: 20091103
  Receipt Date: 20091020
  Transmission Date: 20100525
  Serious: Yes (Other)
  Sender: FDA-Public Use
  Company Number: TRP_06528_2009

PATIENT
  Age: 57 Year
  Sex: Male

DRUGS (2)
  1. RIBAVIRIN [Suspect]
     Indication: HEPATITIS C
     Dosage: 1200 MG, DAILY, ORAL
     Route: 048
  2. PEGINTERFERON ALFA-2B (PEGINTERFERON ALPHA-2B) [Suspect]
     Indication: HEPATITIS C
     Dosage: 80 UG 1X/WEEK; SUBCUTANEOUS
     Route: 058

REACTIONS (9)
  - COLOUR VISION TESTS ABNORMAL [None]
  - EYE OEDEMA [None]
  - OPTIC DISC HAEMORRHAGE [None]
  - OPTIC ISCHAEMIC NEUROPATHY [None]
  - PUPILLARY REFLEX IMPAIRED [None]
  - RED BLOOD CELL SEDIMENTATION RATE INCREASED [None]
  - SCOTOMA [None]
  - VISION BLURRED [None]
  - VISUAL FIELD DEFECT [None]
